FAERS Safety Report 4708365-8 (Version None)
Quarter: 2005Q3

REPORT INFORMATION
  Report Type: 
  Country: None (occurrence: None)
  Receive Date: 20050705
  Receipt Date: 20050627
  Transmission Date: 20060218
  Serious: Yes (Other)
  Sender: FDA-Public Use
  Company Number: HQWYE771928JUN05

PATIENT
  Age: 30 Year
  Sex: Female

DRUGS (12)
  1. EFFEXOR XR [Suspect]
     Indication: DEPRESSION
     Dosage: 150 MG 1X PER 1 DAY ORAL;TAPERED TO 75 MG/DAY; 75 MG 1X PER 1 DAY; 150 MG 1X PER 1 DAY; 75 MG 1X PER
     Route: 048
     Dates: start: 19990101, end: 20000101
  2. EFFEXOR XR [Suspect]
     Indication: POST-TRAUMATIC STRESS DISORDER
     Dosage: 150 MG 1X PER 1 DAY ORAL;TAPERED TO 75 MG/DAY; 75 MG 1X PER 1 DAY; 150 MG 1X PER 1 DAY; 75 MG 1X PER
     Route: 048
     Dates: start: 19990101, end: 20000101
  3. EFFEXOR XR [Suspect]
     Indication: DEPRESSION
     Dosage: 150 MG 1X PER 1 DAY ORAL;TAPERED TO 75 MG/DAY; 75 MG 1X PER 1 DAY; 150 MG 1X PER 1 DAY; 75 MG 1X PER
     Route: 048
     Dates: end: 20031001
  4. EFFEXOR XR [Suspect]
     Indication: POST-TRAUMATIC STRESS DISORDER
     Dosage: 150 MG 1X PER 1 DAY ORAL;TAPERED TO 75 MG/DAY; 75 MG 1X PER 1 DAY; 150 MG 1X PER 1 DAY; 75 MG 1X PER
     Route: 048
     Dates: end: 20031001
  5. EFFEXOR XR [Suspect]
     Indication: DEPRESSION
     Dosage: 150 MG 1X PER 1 DAY ORAL;TAPERED TO 75 MG/DAY; 75 MG 1X PER 1 DAY; 150 MG 1X PER 1 DAY; 75 MG 1X PER
     Route: 048
     Dates: start: 20000101
  6. EFFEXOR XR [Suspect]
     Indication: POST-TRAUMATIC STRESS DISORDER
     Dosage: 150 MG 1X PER 1 DAY ORAL;TAPERED TO 75 MG/DAY; 75 MG 1X PER 1 DAY; 150 MG 1X PER 1 DAY; 75 MG 1X PER
     Route: 048
     Dates: start: 20000101
  7. EFFEXOR XR [Suspect]
     Indication: DEPRESSION
     Dosage: 150 MG 1X PER 1 DAY ORAL;TAPERED TO 75 MG/DAY; 75 MG 1X PER 1 DAY; 150 MG 1X PER 1 DAY; 75 MG 1X PER
     Route: 048
     Dates: start: 20031201
  8. EFFEXOR XR [Suspect]
     Indication: POST-TRAUMATIC STRESS DISORDER
     Dosage: 150 MG 1X PER 1 DAY ORAL;TAPERED TO 75 MG/DAY; 75 MG 1X PER 1 DAY; 150 MG 1X PER 1 DAY; 75 MG 1X PER
     Route: 048
     Dates: start: 20031201
  9. . [Concomitant]
  10. . [Concomitant]
  11. . [Concomitant]
  12. . [Concomitant]

REACTIONS (6)
  - CAESAREAN SECTION [None]
  - DIZZINESS [None]
  - DRUG EXPOSURE DURING PREGNANCY [None]
  - DRUG INEFFECTIVE [None]
  - HYPERTENSION [None]
  - NAUSEA [None]
